FAERS Safety Report 15196263 (Version 1)
Quarter: 2018Q3

REPORT INFORMATION
  Report Type: Spontaneous
  Country: CA (occurrence: CA)
  Receive Date: 20180725
  Receipt Date: 20180725
  Transmission Date: 20181010
  Serious: Yes (Other)
  Sender: FDA-Public Use
  Company Number: CA-PFIZER INC-2018297253

PATIENT
  Age: 59 Year
  Sex: Female

DRUGS (1)
  1. PANTOPRAZOLE [Suspect]
     Active Substance: PANTOPRAZOLE
     Indication: INSOMNIA
     Dosage: 40 MG, 2X/DAY
     Route: 065

REACTIONS (2)
  - Dyspepsia [Unknown]
  - Drug ineffective for unapproved indication [Unknown]
